FAERS Safety Report 7397763-2 (Version None)
Quarter: 2011Q2

REPORT INFORMATION
  Report Type: 
  Country: None (occurrence: None)
  Receive Date: 20110401
  Receipt Date: 20110401
  Transmission Date: 20111010
  Serious: Yes (Other)
  Sender: FDA-Public Use
  Company Number: None

PATIENT
  Age: 42 Year
  Sex: Male
  Weight: 90.7194 kg

DRUGS (1)
  1. AVELOX [Suspect]
     Indication: URINARY TRACT INFECTION
     Dosage: 1 1 DAILY PO
     Route: 048

REACTIONS (10)
  - LIGAMENT RUPTURE [None]
  - INSOMNIA [None]
  - THINKING ABNORMAL [None]
  - OEDEMA PERIPHERAL [None]
  - JOINT SWELLING [None]
  - NIGHTMARE [None]
  - TENDONITIS [None]
  - SUICIDAL IDEATION [None]
  - PAIN [None]
  - TENDON RUPTURE [None]
